FAERS Safety Report 9561115 (Version 1)
Quarter: 2013Q3

REPORT INFORMATION
  Report Type: Spontaneous
  Country: US (occurrence: US)
  Receive Date: 20130927
  Receipt Date: 20130927
  Transmission Date: 20140515
  Serious: No
  Sender: FDA-Public Use
  Company Number: US-BIOGENIDEC-2013BI056643

PATIENT
  Sex: Female

DRUGS (4)
  1. TECFIDERA [Suspect]
     Indication: PRODUCT USED FOR UNKNOWN INDICATION
     Route: 048
  2. TRANXENE [Concomitant]
  3. PAXIL [Concomitant]
  4. OMEGA 3 [Concomitant]

REACTIONS (9)
  - Pharyngitis [Unknown]
  - Urinary tract infection [Unknown]
  - Sensation of heaviness [Unknown]
  - Chills [Unknown]
  - Somnolence [Unknown]
  - Tremor [Unknown]
  - Dry skin [Unknown]
  - Dry eye [Unknown]
  - Hypoaesthesia [Unknown]
